FAERS Safety Report 17148705 (Version 1)
Quarter: 2019Q4

REPORT INFORMATION
  Report Type: Spontaneous
  Country: US (occurrence: US)
  Receive Date: 20191213
  Receipt Date: 20191213
  Transmission Date: 20200122
  Serious: Yes (Other)
  Sender: FDA-Public Use
  Company Number: US-UCBSA-2016003349

PATIENT
  Sex: Male

DRUGS (3)
  1. KEPPRA [Suspect]
     Active Substance: LEVETIRACETAM
     Dosage: UNK
     Dates: start: 201511, end: 201511
  2. KEPPRA [Suspect]
     Active Substance: LEVETIRACETAM
     Indication: PRODUCT USED FOR UNKNOWN INDICATION
     Dosage: 2 DF, 2X/DAY (2 PILLS 2 IN 1 D)
     Dates: start: 201505, end: 201511
  3. HUMIRA [Suspect]
     Active Substance: ADALIMUMAB
     Indication: CROHN^S DISEASE
     Dosage: 40 MG, EV 2 WEEKS (40 MG 1 IN 2 WK)
     Route: 058
     Dates: start: 20150901

REACTIONS (8)
  - Abdominal pain upper [Unknown]
  - Weight decreased [Unknown]
  - Constipation [Unknown]
  - Anxiety [Unknown]
  - Seizure [Unknown]
  - Initial insomnia [Unknown]
  - Rectal haemorrhage [Unknown]
  - Depressed mood [Unknown]

NARRATIVE: CASE EVENT DATE: 2015
